FAERS Safety Report 21466996 (Version 7)
Quarter: 2024Q1

REPORT INFORMATION
  Report Type: Spontaneous
  Country: GR (occurrence: GR)
  Receive Date: 20221017
  Receipt Date: 20240219
  Transmission Date: 20240410
  Serious: Yes (Hospitalization, Other)
  Sender: FDA-Public Use
  Company Number: GR-VIATRIS-2022-04-255

PATIENT
  Age: 60 Year
  Sex: Male

DRUGS (10)
  1. METHOTREXATE [Suspect]
     Active Substance: METHOTREXATE
     Indication: Rheumatoid arthritis
     Dosage: UNK
     Route: 065
  2. RABEPRAZOLE [Suspect]
     Active Substance: RABEPRAZOLE
     Indication: Product used for unknown indication
     Dosage: 20 MILLIGRAM, 20 MG X1
     Route: 065
  3. ADALIMUMAB [Suspect]
     Active Substance: ADALIMUMAB\ISOPROPYL ALCOHOL
     Indication: Rheumatoid arthritis
     Dosage: UNK
     Route: 058
  4. INFLIXIMAB [Suspect]
     Active Substance: INFLIXIMAB
     Indication: Rheumatoid arthritis
     Dosage: UNK
     Route: 065
  5. CITALOPRAM [Suspect]
     Active Substance: CITALOPRAM HYDROBROMIDE
     Indication: Product used for unknown indication
     Dosage: 20 MILLIGRAM, 20 MG, 1/2 X1
     Route: 065
  6. TOCILIZUMAB [Suspect]
     Active Substance: TOCILIZUMAB
     Indication: Product used for unknown indication
     Dosage: 720 MG/MONTH, LAST INFUSION 3 WEEKS AGO
     Route: 042
  7. ABATACEPT [Suspect]
     Active Substance: ABATACEPT
     Indication: Rheumatoid arthritis
     Dosage: UNK
     Route: 065
  8. REMICADE [Suspect]
     Active Substance: INFLIXIMAB
     Indication: Rheumatoid arthritis
     Dosage: UNK
     Route: 042
  9. PREDNISOLONE [Suspect]
     Active Substance: PREDNISOLONE
     Indication: Rheumatoid arthritis
     Dosage: 7.5 MILLIGRAM, ~7.5 MG X1
     Route: 065
  10. ADALIMUMAB [Concomitant]
     Active Substance: ADALIMUMAB\ISOPROPYL ALCOHOL
     Indication: Rheumatoid arthritis
     Dosage: UNK
     Route: 065

REACTIONS (18)
  - Pyomyositis [Recovered/Resolved]
  - Polyarthritis [Recovered/Resolved]
  - Cachexia [Recovered/Resolved]
  - Peripheral swelling [Recovered/Resolved]
  - Joint range of motion decreased [Recovered/Resolved]
  - Pyrexia [Recovered/Resolved]
  - Staphylococcus test positive [Recovered/Resolved]
  - Intervertebral discitis [Recovered/Resolved]
  - Abscess [Recovered/Resolved]
  - Soft tissue infection [Recovered/Resolved]
  - Skin ulcer [Recovered/Resolved]
  - Infection [Recovering/Resolving]
  - Staphylococcal infection [Unknown]
  - Drug ineffective [Unknown]
  - Treatment noncompliance [Unknown]
  - Therapy partial responder [Unknown]
  - Therapeutic response decreased [Unknown]
  - Therapeutic product effect incomplete [Unknown]
